FAERS Safety Report 5657083-0 (Version None)
Quarter: 2008Q1

REPORT INFORMATION
  Report Type: 
  Country: None (occurrence: None)
  Receive Date: 20080310
  Receipt Date: 20080228
  Transmission Date: 20080703
  Serious: Yes (Hospitalization, Disabling, Other)
  Sender: FDA-Public Use
  Company Number: US-JNJFOC-20080300717

PATIENT
  Sex: Male
  Weight: 79.38 kg

DRUGS (10)
  1. DURAGESIC-100 [Suspect]
     Route: 062
  2. DURAGESIC-100 [Suspect]
     Route: 062
  3. DURAGESIC-100 [Suspect]
     Route: 062
  4. DURAGESIC-100 [Suspect]
     Route: 062
  5. DURAGESIC-100 [Suspect]
     Indication: PAIN
     Route: 062
  6. UNSPECIFIED PRODUCT [Suspect]
     Indication: DRUG USE FOR UNKNOWN INDICATION
     Route: 065
  7. STEROIDS [Concomitant]
     Route: 048
  8. KLONOPIN [Concomitant]
     Route: 065
  9. DEMEROL [Concomitant]
     Route: 065
  10. INHALERS [Concomitant]
     Route: 065

REACTIONS (8)
  - AMNESIA [None]
  - BALANCE DISORDER [None]
  - BLOOD GLUCOSE INCREASED [None]
  - BRAIN INJURY [None]
  - COMA [None]
  - DYSPHEMIA [None]
  - LUNG DISORDER [None]
  - OVERDOSE [None]
